FAERS Safety Report 10907506 (Version 1)
Quarter: 2015Q1

REPORT INFORMATION
  Report Type: Spontaneous
  Country: US (occurrence: US)
  Receive Date: 20150312
  Receipt Date: 20150312
  Transmission Date: 20150721
  Serious: No
  Sender: FDA-Public Use
  Company Number: US-009507513-1503USA004157

PATIENT
  Sex: Female

DRUGS (4)
  1. TINACTIN [Suspect]
     Active Substance: TOLNAFTATE
     Indication: SKIN BURNING SENSATION
  2. TINACTIN [Suspect]
     Active Substance: TOLNAFTATE
     Indication: SKIN EXFOLIATION
  3. TINACTIN [Suspect]
     Active Substance: TOLNAFTATE
     Indication: PRURITUS
  4. TINACTIN [Suspect]
     Active Substance: TOLNAFTATE
     Indication: ECZEMA
     Dosage: UNK, UNKNOWN
     Route: 061

REACTIONS (2)
  - Off label use [Unknown]
  - Burning sensation [Recovered/Resolved]
